FAERS Safety Report 4289378-X (Version None)
Quarter: 2004Q1

REPORT INFORMATION
  Report Type: 
  Country: None (occurrence: None)
  Receive Date: 20040126
  Receipt Date: 20030925
  Transmission Date: 20041129
  Serious: No
  Sender: FDA-Public Use
  Company Number: USA030948271

PATIENT
  Sex: Female

DRUGS (1)
  1. FORTEO [Suspect]

REACTIONS (6)
  - DIZZINESS [None]
  - FATIGUE [None]
  - INFLUENZA [None]
  - NAUSEA [None]
  - PAIN [None]
  - TREMOR [None]
